FAERS Safety Report 23266148 (Version 6)
Quarter: 2024Q1

REPORT INFORMATION
  Report Type: Other
  Country: US (occurrence: None)
  Receive Date: 20231206
  Receipt Date: 20240227
  Transmission Date: 20240410
  Serious: Yes (Other)
  Sender: FDA-Public Use
  Company Number: US-ROCHE-3468911

PATIENT
  Age: 44 Year
  Sex: Female

DRUGS (12)
  1. XOLAIR [Suspect]
     Active Substance: OMALIZUMAB
     Indication: Idiopathic urticaria
     Dosage: INJECT 2 SYRINGE OF 150 MG WITH 1 SYRINGE OF 75 MG (TOTAL 375 MG)?INJECT 375MG SC EVERY 2 WEEK
     Route: 058
     Dates: start: 2022
  2. XOLAIR [Suspect]
     Active Substance: OMALIZUMAB
  3. XOLAIR [Suspect]
     Active Substance: OMALIZUMAB
  4. XOLAIR [Suspect]
     Active Substance: OMALIZUMAB
     Dosage: INJECT 2 SYRINGE OF 150 MG WITH 1 SYRINGE OF 75 MG (TOTAL 375 MG)?INJECT 375MG SC EVERY 2 WEEK
     Route: 058
     Dates: start: 2022
  5. XOLAIR [Suspect]
     Active Substance: OMALIZUMAB
  6. XOLAIR [Suspect]
     Active Substance: OMALIZUMAB
  7. CLOBETASOL [Concomitant]
     Active Substance: CLOBETASOL
  8. EPINEPHRINE [Concomitant]
     Active Substance: EPINEPHRINE
     Dosage: 1MG/ML
  9. VENTOLIN HFA [Concomitant]
     Active Substance: ALBUTEROL SULFATE
  10. XYZAL [Concomitant]
     Active Substance: LEVOCETIRIZINE DIHYDROCHLORIDE
  11. ZANTAC [Concomitant]
     Active Substance: RANITIDINE HYDROCHLORIDE
  12. METHOTREXATE [Concomitant]
     Active Substance: METHOTREXATE

REACTIONS (4)
  - Parkinson^s disease [Unknown]
  - Movement disorder [Unknown]
  - Off label use [Unknown]
  - Off label use [Unknown]
